FAERS Safety Report 6765623-3 (Version None)
Quarter: 2010Q2

REPORT INFORMATION
  Report Type: 
  Country: None (occurrence: None)
  Receive Date: 20100611
  Receipt Date: 20100603
  Transmission Date: 20101027
  Serious: Yes (Other)
  Sender: FDA-Public Use
  Company Number: JP-NOVOPROD-309599

PATIENT
  Age: 52 Year
  Sex: Male

DRUGS (2)
  1. NOVORAPID 30 MIX CHU PENFILL [Suspect]
     Indication: TYPE 2 DIABETES MELLITUS
     Dosage: 20 IU, QD
     Route: 058
     Dates: start: 20100518
  2. LIPITOR [Concomitant]
     Dosage: UNK
     Dates: start: 20090501, end: 20100501

REACTIONS (1)
  - HEPATIC FUNCTION ABNORMAL [None]
